FAERS Safety Report 5140971-1 (Version None)
Quarter: 2006Q4

REPORT INFORMATION
  Report Type: 
  Country: None (occurrence: None)
  Receive Date: 20061027
  Receipt Date: 20061027
  Transmission Date: 20070319
  Serious: Yes (Hospitalization)
  Sender: FDA-Public Use
  Company Number: None

PATIENT
  Age: 65 Year
  Sex: Male

DRUGS (20)
  1. QUETIAPINE FUMARATE [Suspect]
     Indication: INSOMNIA
     Dosage: 100MG PO HS
     Route: 048
     Dates: start: 20060911, end: 20060912
  2. QUETIAPINE FUMARATE [Suspect]
     Indication: NIGHTMARE
     Dosage: 100MG PO HS
     Route: 048
     Dates: start: 20060911, end: 20060912
  3. METOPROLOL XL [Suspect]
     Indication: CARDIAC FAILURE CONGESTIVE
     Dosage: 100MG DAILY
     Dates: start: 20060718, end: 20060912
  4. CHLORPHENIRAMINE MALEATE [Concomitant]
  5. DIVALPROEX SLOW ACTING [Concomitant]
  6. GABAPENTIN 900 [Concomitant]
  7. REGLAN [Concomitant]
  8. TAMSULOSIN HCL [Concomitant]
  9. OMEPRAZOLE [Concomitant]
  10. VALSARTAN [Concomitant]
  11. METOPROLOL TARTRATE [Concomitant]
  12. CELEBREX [Concomitant]
  13. PERCOCET [Concomitant]
  14. VENLAFAXIINE HCL [Concomitant]
  15. SEROQUEL [Concomitant]
  16. FLUOXETINE [Concomitant]
  17. WARFARIN SODIUM [Concomitant]
  18. ZOMIG [Concomitant]
  19. SUCRALFATE [Concomitant]
  20. GUAIFENESIN [Concomitant]

REACTIONS (1)
  - SYNCOPE [None]
